FAERS Safety Report 12552854 (Version 1)
Quarter: 2016Q3

REPORT INFORMATION
  Report Type: Spontaneous
  Country: FR (occurrence: FR)
  Receive Date: 20160713
  Receipt Date: 20160713
  Transmission Date: 20161109
  Serious: Yes (Other)
  Sender: FDA-Public Use
  Company Number: FR-TEVA-673735ISR

PATIENT
  Age: 8 Year
  Sex: Female

DRUGS (8)
  1. VOGALENE [Suspect]
     Active Substance: METOPIMAZINE
     Route: 042
     Dates: start: 20130711, end: 20130716
  2. ZOPHREN 8 MG/4 ML [Suspect]
     Active Substance: ONDANSETRON HYDROCHLORIDE
     Route: 042
     Dates: start: 20130711, end: 20130716
  3. ETOPOSIDE. [Suspect]
     Active Substance: ETOPOSIDE
     Indication: OSTEOSARCOMA
     Dosage: FIRST COURSE OF CHEMOTHERAPY PROTOCOL SARCOME 09
     Route: 041
     Dates: start: 20130711, end: 20130716
  4. IFOSFAMIDE EG 40 MG/ML [Suspect]
     Active Substance: IFOSFAMIDE
     Indication: OSTEOSARCOMA
     Dosage: CHEMOTHERAPY PROTOCOL SARCOME 09
     Route: 041
     Dates: start: 20130711, end: 20130715
  5. METHOTREXATE. [Concomitant]
     Active Substance: METHOTREXATE
     Indication: OSTEOSARCOMA
     Dosage: HIGH DOSE
     Dates: start: 20130617
  6. ZOMETA [Concomitant]
     Active Substance: ZOLEDRONIC ACID
     Dates: start: 20130622
  7. METHOTREXATE. [Concomitant]
     Active Substance: METHOTREXATE
     Dosage: HIGH DOSE. CHEMOTHERAPY PROTOCOL SARCOME 09. ALTERNED INTAKE WITH ETOPOSIDE (VP6) AND IFOSFAMIDE
     Dates: start: 201307, end: 201307
  8. UROMITEXAN [Concomitant]
     Active Substance: MESNA

REACTIONS (3)
  - Eyelid ptosis [Recovered/Resolved]
  - Dyskinesia [Recovered/Resolved]
  - Speech disorder [Recovered/Resolved]

NARRATIVE: CASE EVENT DATE: 20130712
